FAERS Safety Report 24074905 (Version 2)
Quarter: 2024Q3

REPORT INFORMATION
  Report Type: Report from Study
  Country: US (occurrence: US)
  Receive Date: 20240710
  Receipt Date: 20240723
  Transmission Date: 20241017
  Serious: No
  Sender: AMGEN
  Company Number: US-AMGEN-USASP2024134357

PATIENT
  Age: 79 Year
  Sex: Male

DRUGS (1)
  1. ENBREL [Suspect]
     Active Substance: BENZYL ALCOHOL\ETANERCEPT
     Indication: Rheumatoid arthritis
     Dosage: 50 MILLIGRAM, QWK
     Route: 065
     Dates: start: 202406

REACTIONS (4)
  - Wrong technique in product usage process [Unknown]
  - Injection site haemorrhage [Unknown]
  - Drug dose omission by device [Unknown]
  - Injection site pain [Unknown]

NARRATIVE: CASE EVENT DATE: 20240705
